FAERS Safety Report 17854535 (Version 1)
Quarter: 2020Q2

REPORT INFORMATION
  Report Type: Spontaneous
  Country: US (occurrence: US)
  Receive Date: 20200603
  Receipt Date: 20200603
  Transmission Date: 20200714
  Serious: Yes (Other)
  Sender: FDA-Public Use
  Company Number: US-BAYER-2020-082194

PATIENT
  Age: 32 Year
  Sex: Male

DRUGS (3)
  1. JIVI [Suspect]
     Active Substance: DAMOCTOCOG ALFA PEGOL
     Indication: PROPHYLAXIS
     Dosage: 4500 U
     Route: 042
  2. JIVI [Suspect]
     Active Substance: DAMOCTOCOG ALFA PEGOL
     Indication: PROPHYLAXIS
     Dosage: TREATMENT
     Route: 042
  3. JIVI [Suspect]
     Active Substance: DAMOCTOCOG ALFA PEGOL
     Indication: PROPHYLAXIS
     Dosage: TREATMENT - USED 1 DOSE FOR EACH BLEED (LEFT HIP AND LEFT KNEE BLEED)
     Route: 042
     Dates: start: 202004, end: 202004

REACTIONS (2)
  - Joint injury [Recovered/Resolved]
  - Haemarthrosis [Recovered/Resolved]

NARRATIVE: CASE EVENT DATE: 202004
